FAERS Safety Report 12976442 (Version 1)
Quarter: 2016Q4

REPORT INFORMATION
  Report Type: Spontaneous
  Country: US (occurrence: US)
  Receive Date: 20161127
  Receipt Date: 20161127
  Transmission Date: 20170207
  Serious: No
  Sender: FDA-Public Use
  Company Number: US-B.I. PHARMACEUTICALS,INC./RIDGEFIELD-2016-BI-080128

PATIENT
  Age: 67 Year
  Sex: Female

DRUGS (2)
  1. OFEV [Suspect]
     Active Substance: NINTEDANIB
     Indication: IDIOPATHIC PULMONARY FIBROSIS
     Route: 048
     Dates: start: 20160819, end: 20160923
  2. LEVOTHYROXINE. [Concomitant]
     Active Substance: LEVOTHYROXINE
     Indication: HYPOTHYROIDISM
     Dosage: ONCE DAILY;  FORM STRENGTH: .100MCG
     Route: 048

REACTIONS (10)
  - Pyrexia [Recovered/Resolved]
  - Blister [Not Recovered/Not Resolved]
  - Urinary tract infection [Recovered/Resolved]
  - Pain [Not Recovered/Not Resolved]
  - Alopecia [Not Recovered/Not Resolved]
  - Chills [Not Recovered/Not Resolved]
  - Rash [Not Recovered/Not Resolved]
  - Chills [Recovered/Resolved]
  - Throat irritation [Recovered/Resolved]
  - Skin burning sensation [Not Recovered/Not Resolved]

NARRATIVE: CASE EVENT DATE: 20160918
